FAERS Safety Report 19070256 (Version 9)
Quarter: 2025Q1

REPORT INFORMATION
  Report Type: Report from Study
  Country: CA (occurrence: CA)
  Receive Date: 20210329
  Receipt Date: 20250206
  Transmission Date: 20250409
  Serious: Yes (Hospitalization, Other)
  Sender: TAKEDA
  Company Number: CA-TAKEDA-2020TUS036239

PATIENT
  Age: 13 Year
  Sex: Female

DRUGS (22)
  1. VEDOLIZUMAB [Suspect]
     Active Substance: VEDOLIZUMAB
     Indication: Crohn^s disease
  2. VEDOLIZUMAB [Suspect]
     Active Substance: VEDOLIZUMAB
  3. VEDOLIZUMAB [Suspect]
     Active Substance: VEDOLIZUMAB
  4. VEDOLIZUMAB [Suspect]
     Active Substance: VEDOLIZUMAB
  5. VEDOLIZUMAB [Suspect]
     Active Substance: VEDOLIZUMAB
  6. VEDOLIZUMAB [Suspect]
     Active Substance: VEDOLIZUMAB
     Dosage: 300 MILLIGRAM, Q4WEEKS
     Dates: start: 20230425
  7. VEDOLIZUMAB [Suspect]
     Active Substance: VEDOLIZUMAB
     Dosage: 300 MILLIGRAM, Q4WEEKS
     Dates: end: 20231010
  8. VEDOLIZUMAB [Suspect]
     Active Substance: VEDOLIZUMAB
  9. AZATHIOPRINE [Concomitant]
     Active Substance: AZATHIOPRINE
     Dosage: 100 MILLIGRAM, QD
     Dates: start: 202404
  10. AZATHIOPRINE [Concomitant]
     Active Substance: AZATHIOPRINE
     Dosage: 125 MILLIGRAM, QD
     Dates: start: 202410
  11. PREDNISONE [Concomitant]
     Active Substance: PREDNISONE
  12. URSODIOL [Concomitant]
     Active Substance: URSODIOL
  13. MELATONIN [Concomitant]
     Active Substance: MELATONIN
  14. MONTELUKAST [Concomitant]
     Active Substance: MONTELUKAST
  15. CLARITIN [Concomitant]
     Active Substance: LORATADINE
  16. SYMBICORT [Concomitant]
     Active Substance: BUDESONIDE\FORMOTEROL FUMARATE DIHYDRATE
  17. ALBUTEROL [Concomitant]
     Active Substance: ALBUTEROL
  18. ALVESCO [Concomitant]
     Active Substance: CICLESONIDE
  19. CORTISONE [Concomitant]
     Active Substance: CORTISONE
  20. IMURAN [Concomitant]
     Active Substance: AZATHIOPRINE
  21. IRON [Concomitant]
     Active Substance: IRON
  22. VITAMIN D [Concomitant]
     Active Substance: VITAMIN D NOS

REACTIONS (20)
  - Rectal haemorrhage [Recovered/Resolved]
  - Appendicitis [Unknown]
  - Cholangitis sclerosing [Unknown]
  - Crohn^s disease [Not Recovered/Not Resolved]
  - Bronchospasm [Unknown]
  - Asthma [Not Recovered/Not Resolved]
  - Frequent bowel movements [Recovered/Resolved]
  - Abdominal pain [Recovered/Resolved]
  - Diarrhoea [Unknown]
  - Off label use [Unknown]
  - Drug ineffective [Unknown]
  - Drug hypersensitivity [Unknown]
  - Rhinorrhoea [Not Recovered/Not Resolved]
  - Hot flush [Unknown]
  - Urticaria [Recovered/Resolved]
  - Vomiting [Recovered/Resolved]
  - Headache [Recovered/Resolved]
  - Fatigue [Unknown]
  - Nausea [Recovered/Resolved]
  - Nasopharyngitis [Recovering/Resolving]

NARRATIVE: CASE EVENT DATE: 20200825
